FAERS Safety Report 18095018 (Version 1)
Quarter: 2020Q3

REPORT INFORMATION
  Report Type: Spontaneous
  Country: US (occurrence: US)
  Receive Date: 20200731
  Receipt Date: 20200731
  Transmission Date: 20201103
  Serious: No
  Sender: FDA-Public Use
  Company Number: US-DRREDDYS-USA/USA/20/0125332

PATIENT
  Age: 35 Year
  Sex: Female
  Weight: 95.4 kg

DRUGS (1)
  1. SUMATRIPTAN SUCCINATE TABLETS [Suspect]
     Active Substance: SUMATRIPTAN SUCCINATE
     Indication: MIGRAINE
     Route: 048
     Dates: start: 20200709, end: 20200710

REACTIONS (7)
  - Paraesthesia [Unknown]
  - Anxiety [Unknown]
  - Hot flush [Unknown]
  - Panic attack [Unknown]
  - Feeling of body temperature change [Unknown]
  - Hypoaesthesia [Unknown]
  - Burning sensation [Unknown]

NARRATIVE: CASE EVENT DATE: 20200709
